FAERS Safety Report 25484143 (Version 2)
Quarter: 2025Q3

REPORT INFORMATION
  Report Type: Spontaneous
  Country: US (occurrence: US)
  Receive Date: 20250626
  Receipt Date: 20250707
  Transmission Date: 20251020
  Serious: No
  Sender: SANOFI AVENTIS
  Company Number: US-SA-2025SA179310

PATIENT
  Age: 36 Year
  Sex: Male

DRUGS (2)
  1. TZIELD [Suspect]
     Active Substance: TEPLIZUMAB-MZWV
     Dosage: 111 UG, QD
     Route: 065
     Dates: start: 20250616, end: 202506
  2. TZIELD [Suspect]
     Active Substance: TEPLIZUMAB-MZWV
     Dosage: 1761 UG, QD
     Route: 065
     Dates: start: 202506

REACTIONS (9)
  - Chills [Recovered/Resolved]
  - Brain fog [Unknown]
  - Blood glucose increased [Unknown]
  - Feeling hot [Recovering/Resolving]
  - Paraesthesia [Recovering/Resolving]
  - Swelling [Recovering/Resolving]
  - Red blood cell count decreased [Unknown]
  - Headache [Unknown]
  - Rash [Recovering/Resolving]

NARRATIVE: CASE EVENT DATE: 20250601
